FAERS Safety Report 17518887 (Version 8)
Quarter: 2021Q1

REPORT INFORMATION
  Report Type: Spontaneous
  Country: US (occurrence: US)
  Receive Date: 20200309
  Receipt Date: 20210120
  Transmission Date: 20210419
  Serious: No
  Sender: FDA-Public Use
  Company Number: US-PFIZER INC-2020103707

PATIENT
  Age: 71 Year
  Sex: Male
  Weight: 89.34 kg

DRUGS (4)
  1. BOSULIF [Suspect]
     Active Substance: BOSUTINIB MONOHYDRATE
     Dosage: 400 MG
  2. BOSULIF [Suspect]
     Active Substance: BOSUTINIB MONOHYDRATE
     Dosage: 200 MG
  3. BOSULIF [Suspect]
     Active Substance: BOSUTINIB MONOHYDRATE
     Dosage: 100 MG
  4. BOSULIF [Suspect]
     Active Substance: BOSUTINIB MONOHYDRATE
     Indication: CHRONIC MYELOID LEUKAEMIA
     Dosage: UNK

REACTIONS (7)
  - Blood count abnormal [Unknown]
  - Tooth socket haemorrhage [Unknown]
  - Diarrhoea [Recovering/Resolving]
  - Chronic obstructive pulmonary disease [Unknown]
  - Taste disorder [Recovering/Resolving]
  - Weight decreased [Unknown]
  - Decreased appetite [Unknown]
